FAERS Safety Report 8352360-7 (Version None)
Quarter: 2012Q2

REPORT INFORMATION
  Report Type: 
  Country: None (occurrence: None)
  Receive Date: 20120511
  Receipt Date: 20120508
  Transmission Date: 20120825
  Serious: Yes (Other)
  Sender: FDA-Public Use
  Company Number: US-PFIZER INC-2012112293

PATIENT
  Sex: Male
  Weight: 79.365 kg

DRUGS (1)
  1. IBUPROFEN (ADVIL) [Suspect]
     Indication: MYALGIA
     Dosage: UNK
     Route: 048

REACTIONS (1)
  - CARTILAGE INJURY [None]
